FAERS Safety Report 9224265 (Version 1)
Quarter: 2013Q1

REPORT INFORMATION
  Report Type: Spontaneous
  Country: US (occurrence: None)
  Receive Date: 20120910
  Receipt Date: 20120910
  Transmission Date: 20140127
  Serious: No
  Sender: FDA-Public Use
  Company Number: 1208USA004657

PATIENT
  Sex: Male

DRUGS (1)
  1. ZIOPTAN (TAFLUPROST) EYE DROPS, SOLUTION, 0.0015% [Suspect]
     Indication: GLAUCOMA
     Route: 047

REACTIONS (2)
  - Cough [None]
  - Underdose [None]
